FAERS Safety Report 10466573 (Version 2)
Quarter: 2015Q4

REPORT INFORMATION
  Report Type: Spontaneous
  Country: US (occurrence: US)
  Receive Date: 20140922
  Receipt Date: 20151210
  Transmission Date: 20160304
  Serious: No
  Sender: FDA-Public Use
  Company Number: US-JNJFOC-20140911296

PATIENT
  Age: 13 Year
  Sex: Male

DRUGS (2)
  1. INVEGA [Suspect]
     Active Substance: PALIPERIDONE
     Indication: PRODUCT USED FOR UNKNOWN INDICATION
     Route: 048
  2. RISPERDAL [Suspect]
     Active Substance: RISPERIDONE
     Indication: ATTENTION DEFICIT/HYPERACTIVITY DISORDER
     Route: 048
     Dates: start: 200310, end: 200401

REACTIONS (4)
  - Galactorrhoea [Unknown]
  - Off label use [Unknown]
  - Gynaecomastia [Unknown]
  - Product use issue [Unknown]

NARRATIVE: CASE EVENT DATE: 200310
